FAERS Safety Report 15776918 (Version 2)
Quarter: 2019Q2

REPORT INFORMATION
  Report Type: Report from Study
  Country: CA (occurrence: CA)
  Receive Date: 20181231
  Receipt Date: 20190606
  Transmission Date: 20190711
  Serious: Yes (Hospitalization)
  Sender: FDA-Public Use
  Company Number: CA-TAKEDA-2018MPI018085

PATIENT
  Age: 68 Year
  Sex: Female

DRUGS (3)
  1. EDOXABAN [Concomitant]
     Active Substance: EDOXABAN TOSYLATE
     Indication: DEEP VEIN THROMBOSIS
     Dosage: 30 MG, QD
     Route: 065
     Dates: start: 20180912
  2. IXAZOMIB [Suspect]
     Active Substance: IXAZOMIB
     Indication: PLASMA CELL MYELOMA
     Dosage: 2.3 MILLIGRAM, UNK
     Route: 048
     Dates: start: 20181106
  3. ONDANSETRON [Concomitant]
     Active Substance: ONDANSETRON
     Indication: DEEP VEIN THROMBOSIS
     Dosage: 8 MG, UNK
     Route: 042
     Dates: start: 20181106

REACTIONS (1)
  - Device related infection [Unknown]
